FAERS Safety Report 4667065-3 (Version None)
Quarter: 2005Q2

REPORT INFORMATION
  Report Type: 
  Country: None (occurrence: None)
  Receive Date: 20050520
  Receipt Date: 20040827
  Transmission Date: 20051028
  Serious: Yes (Other)
  Sender: FDA-Public Use
  Company Number: PHBS2004NO11486

PATIENT
  Age: 60 Year
  Sex: Male

DRUGS (6)
  1. ZOMETA [Suspect]
     Indication: HYPERCALCAEMIA OF MALIGNANCY
     Dosage: 4 MG, QMO
     Route: 065
     Dates: start: 20021107, end: 20040601
  2. ADRIAMYCIN PFS [Concomitant]
     Dosage: 20 MG/D FROM 02-03
  3. DOXORUBICIN HCL [Concomitant]
     Dosage: 20 MG/D FROM 02-03
  4. TAXOTERE [Concomitant]
     Dosage: 140 MG EVERY 3. WEEK FROM 03-04
     Route: 065
     Dates: start: 20030101, end: 20040101
  5. PREDNISOLONE [Concomitant]
     Dosage: 50 MG, Q48H FROM 02-03
     Dates: start: 20020101, end: 20030101
  6. SENDOXAN [Concomitant]
     Dosage: 400 MG, QW FROM 02-03
     Dates: start: 20020101, end: 20030101

REACTIONS (2)
  - ASEPTIC NECROSIS BONE [None]
  - JAW DISORDER [None]
